FAERS Safety Report 6718946-8 (Version None)
Quarter: 2010Q2

REPORT INFORMATION
  Report Type: 
  Country: None (occurrence: None)
  Receive Date: 20100511
  Receipt Date: 20100507
  Transmission Date: 20101027
  Serious: Yes (Death, Life-Threatening, Other)
  Sender: FDA-Public Use
  Company Number: JP-JNJFOC-20091004368

PATIENT
  Sex: Male
  Weight: 43 kg

DRUGS (11)
  1. ITRIZOLE [Suspect]
     Indication: FEBRILE NEUTROPENIA
     Route: 041
  2. ITRIZOLE [Suspect]
     Route: 041
  3. MEROPENEM [Concomitant]
     Indication: FEBRILE NEUTROPENIA
     Route: 042
  4. CIPROFLOXACIN [Concomitant]
     Indication: FEBRILE NEUTROPENIA
     Route: 042
  5. CIPROFLOXACIN [Concomitant]
     Route: 042
  6. TARGOCID [Concomitant]
     Indication: FEBRILE NEUTROPENIA
     Route: 042
  7. TARGOCID [Concomitant]
     Route: 042
  8. TARGOCID [Concomitant]
     Route: 042
  9. POTASSIUM-ASPARTATE [Concomitant]
     Indication: HYPOKALAEMIA
     Route: 042
  10. POTASSIUM-ASPARTATE [Concomitant]
     Indication: FEBRILE NEUTROPENIA
     Route: 042
  11. CONCLYTE-NA [Concomitant]
     Indication: HYPONATRAEMIA
     Route: 042

REACTIONS (8)
  - ACUTE MYELOID LEUKAEMIA [None]
  - BLOOD LACTATE DEHYDROGENASE INCREASED [None]
  - ELECTROLYTE IMBALANCE [None]
  - HEPATIC FUNCTION ABNORMAL [None]
  - HYPERTENSION [None]
  - NEUTROPHIL PERCENTAGE DECREASED [None]
  - RENAL IMPAIRMENT [None]
  - WHITE BLOOD CELL COUNT DECREASED [None]
